FAERS Safety Report 7943376-0 (Version None)
Quarter: 2011Q4

REPORT INFORMATION
  Report Type: 
  Country: None (occurrence: None)
  Receive Date: 20111128
  Receipt Date: 20110715
  Transmission Date: 20120403
  Serious: No
  Sender: FDA-Public Use
  Company Number: US-TYCO HEALTHCARE/MALLINCKRODT-T201101448

PATIENT
  Age: 50 Year
  Sex: Male

DRUGS (4)
  1. ULTRA-TECHNEKOW [Suspect]
     Dosage: STRESS DOSE
  2. TECHNETIUM TC 99M SESTAMIBI [Suspect]
     Dosage: STRESS DOSE
  3. ULTRA-TECHNEKOW [Suspect]
     Dosage: REST DOSE
  4. TECHNETIUM TC 99M SESTAMIBI [Suspect]
     Indication: CARDIAC STRESS TEST
     Dosage: REST DOSE

REACTIONS (1)
  - SWOLLEN TONGUE [None]
